FAERS Safety Report 9258068 (Version 1)
Quarter: 2013Q2

REPORT INFORMATION
  Report Type: Spontaneous
  Country: CO (occurrence: CO)
  Receive Date: 20130426
  Receipt Date: 20130426
  Transmission Date: 20140414
  Serious: Yes (Other)
  Sender: FDA-Public Use
  Company Number: CO-JNJFOC-20130412101

PATIENT
  Sex: Male

DRUGS (1)
  1. REMICADE [Suspect]
     Indication: PSORIASIS
     Route: 042
     Dates: start: 20121029

REACTIONS (3)
  - Weight decreased [Unknown]
  - Dizziness [Unknown]
  - Feeling drunk [Unknown]
